FAERS Safety Report 19299779 (Version 1)
Quarter: 2021Q2

REPORT INFORMATION
  Report Type: Spontaneous
  Country: US (occurrence: US)
  Receive Date: 20210524
  Receipt Date: 20210524
  Transmission Date: 20210717
  Serious: Yes (Other)
  Sender: FDA-Public Use
  Company Number: None

PATIENT
  Age: 76 Year
  Sex: Female
  Weight: 49.5 kg

DRUGS (11)
  1. CALCIUM CITRATE [Concomitant]
     Active Substance: CALCIUM CITRATE
  2. XIIDRA [Suspect]
     Active Substance: LIFITEGRAST
     Indication: DRY EYE
     Dosage: ?          QUANTITY:1 DROP(S);?
     Route: 047
     Dates: start: 20210415, end: 20210510
  3. VITAMIN A+D [Concomitant]
  4. VITAMIN E [Concomitant]
     Active Substance: .ALPHA.-TOCOPHEROL
  5. OMEGA 3 [Concomitant]
     Active Substance: OMEGA-3 FATTY ACIDS
  6. MULTIVITAMIN [Concomitant]
     Active Substance: VITAMINS
  7. B6 [Concomitant]
     Active Substance: PYRIDOXINE HYDROCHLORIDE
  8. VITAMIN D [Concomitant]
     Active Substance: VITAMIN D NOS
  9. FLAXSEED [Concomitant]
     Active Substance: FLAX SEED
  10. RESTASIS [Concomitant]
     Active Substance: CYCLOSPORINE
  11. VITAMIN C [Concomitant]
     Active Substance: ASCORBIC ACID

REACTIONS (6)
  - Upper-airway cough syndrome [None]
  - Lacrimation increased [None]
  - Ocular discomfort [None]
  - Eye inflammation [None]
  - Eye pain [None]
  - Hypersensitivity [None]

NARRATIVE: CASE EVENT DATE: 20210508
